FAERS Safety Report 10268109 (Version 4)
Quarter: 2014Q4

REPORT INFORMATION
  Report Type: Spontaneous
  Country: IT (occurrence: IT)
  Receive Date: 20140630
  Receipt Date: 20141022
  Transmission Date: 20150528
  Serious: Yes (Hospitalization)
  Sender: FDA-Public Use
  Company Number: IT-NOVOPROD-414396

PATIENT
  Age: 20 Year
  Sex: Male

DRUGS (13)
  1. GLUCOPHAGE [Suspect]
     Active Substance: METFORMIN HYDROCHLORIDE
     Indication: DIABETES MELLITUS
     Dosage: 3000 MG, QD
     Route: 048
     Dates: start: 20101007
  2. SINVACOR [Concomitant]
     Active Substance: SIMVASTATIN
     Route: 048
  3. LANOXIN [Concomitant]
     Active Substance: DIGOXIN
     Route: 048
  4. LOORTAN [Concomitant]
     Route: 048
  5. HUMALOG [Suspect]
     Active Substance: INSULIN LISPRO
     Dosage: 55 U, QD (15 U+20 U + 20 U)
     Route: 058
     Dates: start: 20131104
  6. NOVORAPID [Suspect]
     Active Substance: INSULIN ASPART
     Indication: DIABETES MELLITUS
     Dosage: 64 U, QD
     Route: 058
     Dates: start: 20101007
  7. LANTUS [Suspect]
     Active Substance: INSULIN GLARGINE
     Indication: DIABETES MELLITUS
     Dosage: 46 U, QD
     Route: 058
     Dates: start: 20101007
  8. AMIODAR [Concomitant]
     Active Substance: AMIODARONE
     Route: 048
  9. HUMALOG [Suspect]
     Active Substance: INSULIN LISPRO
     Indication: DIABETES MELLITUS
     Dosage: 18 U, QD
     Route: 058
     Dates: start: 20111101
  10. LASIX [Concomitant]
     Active Substance: FUROSEMIDE
     Route: 048
  11. LANTUS [Suspect]
     Active Substance: INSULIN GLARGINE
     Dosage: 10 U, QD
     Route: 058
     Dates: start: 20131104
  12. COUMADIN [Concomitant]
     Active Substance: WARFARIN SODIUM
     Route: 048
  13. DEPAKIN [Concomitant]
     Active Substance: VALPROATE SODIUM
     Route: 065

REACTIONS (3)
  - Lip injury [Recovering/Resolving]
  - Hypoglycaemia [Recovering/Resolving]
  - Epilepsy [Recovering/Resolving]

NARRATIVE: CASE EVENT DATE: 20131030
